FAERS Safety Report 5097639-X (Version None)
Quarter: 2006Q3

REPORT INFORMATION
  Report Type: 
  Country: None (occurrence: None)
  Receive Date: 20060901
  Receipt Date: 20060823
  Transmission Date: 20061208
  Serious: Yes (Other)
  Sender: FDA-Public Use
  Company Number: 2006067663

PATIENT
  Age: 45 Year
  Sex: Female
  Weight: 54 kg

DRUGS (5)
  1. SULFASALAZINE [Suspect]
     Indication: PSORIATIC ARTHROPATHY
     Dosage: 500 MG (1 IN 1 D), ORAL
     Route: 048
     Dates: start: 19900501, end: 20060515
  2. OMEPRAZOLE [Concomitant]
  3. LUTENYL (NOMEGESTROL ACETATE) [Concomitant]
  4. MYOLASTAN (TETRAZEPAM) [Concomitant]
  5. PROPOFAN (CAFFEINE, CARBASALATE CALCIUM, CHLORPHENAMINE MALEATE, DEXTR [Concomitant]

REACTIONS (1)
  - SYSTEMIC LUPUS ERYTHEMATOSUS [None]
